FAERS Safety Report 8732470 (Version 2)
Quarter: 2012Q4

REPORT INFORMATION
  Report Type: 
  Country: FR (occurrence: FR)
  Receive Date: 20120820
  Receipt Date: 20121205
  Transmission Date: 20130627
  Serious: Yes (Hospitalization)
  Sender: FDA-Public Use
  Company Number: FR-ROCHE-1101019

PATIENT
  Age: 54 Year
  Sex: Female

DRUGS (5)
  1. ROCEPHINE [Suspect]
     Indication: MASTOIDITIS
     Route: 030
     Dates: start: 20120619
  2. FLAGYL [Suspect]
     Indication: MASTOIDITIS
     Route: 048
     Dates: start: 20120619, end: 20120726
  3. OFLOCET (FRANCE) [Suspect]
     Indication: MASTOIDITIS
     Dosage: Auricular Drops 1.5mg/0.5ml
     Route: 048
     Dates: start: 20120619
  4. ANTALGIC [Concomitant]
     Indication: MASTOIDITIS
     Route: 065
     Dates: start: 20120619
  5. PREVISCAN [Concomitant]
     Indication: MASTOIDITIS
     Route: 065
     Dates: start: 20120619

REACTIONS (2)
  - Paraesthesia [Recovered/Resolved]
  - Dysaesthesia [Recovered/Resolved]
